APPROVED DRUG PRODUCT: BENTYL
Active Ingredient: DICYCLOMINE HYDROCHLORIDE
Strength: 10MG **Federal Register determination that product was not discontinued or withdrawn for safety or effectiveness reasons**
Dosage Form/Route: CAPSULE;ORAL
Application: N007409 | Product #003
Applicant: ALLERGAN SALES LLC
Approved: Oct 15, 1984 | RLD: Yes | RS: No | Type: DISCN